FAERS Safety Report 9548159 (Version 1)
Quarter: 2013Q2

REPORT INFORMATION
  Report Type: Spontaneous
  Country: US (occurrence: None)
  Receive Date: 20130628
  Receipt Date: 20130628
  Transmission Date: 20140414
  Serious: No
  Sender: FDA-Public Use
  Company Number: 159885

PATIENT
  Age: 77 Year
  Sex: Male
  Weight: 108.86 kg

DRUGS (1)
  1. VANCOMYCIN HYDROCHLORIDE [Suspect]
     Dosage: 1750 MG, EVERY 24 HOURS, INTRAVENOUS
     Route: 042
     Dates: start: 20090108, end: 20090115

REACTIONS (1)
  - Nephritis [None]
